FAERS Safety Report 9228589 (Version 1)
Quarter: 2013Q2

REPORT INFORMATION
  Report Type: Spontaneous
  Country: US (occurrence: US)
  Receive Date: 20130412
  Receipt Date: 20130412
  Transmission Date: 20140414
  Serious: Yes (Hospitalization)
  Sender: FDA-Public Use
  Company Number: US-ABBOTT-13P-163-1072609-00

PATIENT
  Sex: Male
  Weight: 79 kg

DRUGS (5)
  1. HUMIRA [Suspect]
     Indication: PSORIASIS
     Dates: start: 2010, end: 201211
  2. HUMIRA [Suspect]
     Dates: start: 201302
  3. MOTRIN BACK [Concomitant]
     Indication: BACK PAIN
  4. DOVONEX [Concomitant]
     Indication: PSORIASIS
  5. VOLTAREN [Concomitant]
     Indication: MUSCULOSKELETAL PAIN

REACTIONS (2)
  - Inguinal hernia [Recovered/Resolved]
  - Umbilical hernia [Recovered/Resolved]
